FAERS Safety Report 6396273-9 (Version None)
Quarter: 2009Q4

REPORT INFORMATION
  Report Type: 
  Country: None (occurrence: None)
  Receive Date: 20091012
  Receipt Date: 20091002
  Transmission Date: 20100525
  Serious: Yes (Hospitalization)
  Sender: FDA-Public Use
  Company Number: US-BIOGENIDEC-2009BI027165

PATIENT
  Age: 49 Year
  Sex: Female

DRUGS (17)
  1. AVONEX [Suspect]
     Indication: MULTIPLE SCLEROSIS
     Route: 030
     Dates: start: 19980601, end: 20070101
  2. PROPRANOLOL [Concomitant]
     Indication: DRUG USE FOR UNKNOWN INDICATION
  3. KLONOPIN [Concomitant]
     Indication: DRUG USE FOR UNKNOWN INDICATION
  4. AMANTADINE HCL [Concomitant]
     Indication: DRUG USE FOR UNKNOWN INDICATION
  5. TAMOXIFEN CITRATE [Concomitant]
     Indication: DRUG USE FOR UNKNOWN INDICATION
  6. PREDNISONE [Concomitant]
     Indication: DRUG USE FOR UNKNOWN INDICATION
  7. ACYCLOVIR [Concomitant]
     Indication: DRUG USE FOR UNKNOWN INDICATION
  8. ELMIRON [Concomitant]
     Indication: DRUG USE FOR UNKNOWN INDICATION
  9. URICET (PRESUMED URISTAT) [Concomitant]
     Indication: DRUG USE FOR UNKNOWN INDICATION
  10. NEURONTIN [Concomitant]
     Indication: DRUG USE FOR UNKNOWN INDICATION
  11. BIAXIN [Concomitant]
     Indication: DRUG USE FOR UNKNOWN INDICATION
  12. MYAMBUTOL [Concomitant]
     Indication: DRUG USE FOR UNKNOWN INDICATION
  13. CORTIFOAM [Concomitant]
     Indication: DRUG USE FOR UNKNOWN INDICATION
  14. FOSAMAX [Concomitant]
     Indication: DRUG USE FOR UNKNOWN INDICATION
  15. DILAUDID [Concomitant]
     Indication: DRUG USE FOR UNKNOWN INDICATION
  16. CALCIUM [Concomitant]
     Indication: DRUG USE FOR UNKNOWN INDICATION
  17. VITAMIN D [Concomitant]
     Indication: DRUG USE FOR UNKNOWN INDICATION

REACTIONS (11)
  - BACK INJURY [None]
  - BLADDER OPERATION [None]
  - DRUG HYPERSENSITIVITY [None]
  - FALL [None]
  - HYPOAESTHESIA [None]
  - LYMPHOEDEMA [None]
  - MYCOBACTERIUM AVIUM COMPLEX INFECTION [None]
  - OSTEOPOROSIS [None]
  - PAIN IN EXTREMITY [None]
  - RESPIRATORY FAILURE [None]
  - STRESS [None]
